FAERS Safety Report 8363162-X (Version None)
Quarter: 2012Q2

REPORT INFORMATION
  Report Type: 
  Country: None (occurrence: None)
  Receive Date: 20120516
  Receipt Date: 20111109
  Transmission Date: 20120825
  Serious: No
  Sender: FDA-Public Use
  Company Number: US-ALEXION-A201101700

PATIENT
  Sex: Male

DRUGS (3)
  1. COUMADIN [Concomitant]
  2. SOLIRIS [Suspect]
     Indication: PAROXYSMAL NOCTURNAL HAEMOGLOBINURIA
     Dosage: UNK
     Route: 042
  3. MUCINEX [Suspect]
     Indication: NASOPHARYNGITIS
     Dosage: UNK
     Dates: start: 20111101

REACTIONS (3)
  - HAEMOGLOBIN DECREASED [None]
  - NASOPHARYNGITIS [None]
  - INTERNATIONAL NORMALISED RATIO INCREASED [None]
